FAERS Safety Report 6483162-4 (Version None)
Quarter: 2009Q4

REPORT INFORMATION
  Report Type: 
  Country: None (occurrence: None)
  Receive Date: 20091123
  Receipt Date: 20090814
  Transmission Date: 20100525
  Serious: No
  Sender: FDA-Public Use
  Company Number: 8050519

PATIENT
  Age: 23 Year
  Sex: Female

DRUGS (1)
  1. CIMZIA [Suspect]
     Dates: start: 20090519

REACTIONS (1)
  - PARAESTHESIA [None]
